FAERS Safety Report 15709478 (Version 1)
Quarter: 2018Q4

REPORT INFORMATION
  Report Type: Spontaneous
  Country: US (occurrence: US)
  Receive Date: 20181211
  Receipt Date: 20181211
  Transmission Date: 20190205
  Serious: Yes (Other)
  Sender: FDA-Public Use
  Company Number: US-PFIZER INC-2018501877

PATIENT
  Sex: Female

DRUGS (1)
  1. PROTONIX [Suspect]
     Active Substance: PANTOPRAZOLE SODIUM
     Dosage: UNK, DAILY

REACTIONS (2)
  - Vomiting [Unknown]
  - Gastric haemorrhage [Unknown]
